FAERS Safety Report 7325249-X (Version None)
Quarter: 2011Q1

REPORT INFORMATION
  Report Type: 
  Country: None (occurrence: None)
  Receive Date: 20110302
  Receipt Date: 20110226
  Transmission Date: 20110831
  Serious: No
  Sender: FDA-Public Use
  Company Number: US-PFIZER INC-2011042046

PATIENT
  Sex: Female
  Weight: 63 kg

DRUGS (2)
  1. ROBITUSSIN DM [Suspect]
     Indication: SINUS CONGESTION
     Dosage: UNK
     Route: 048
     Dates: start: 20110225
  2. ADVIL CONGESTION RELIEF [Suspect]
     Indication: SINUS HEADACHE
     Dosage: 1 DF, SINGLE
     Route: 048
     Dates: start: 20101212, end: 20101212

REACTIONS (1)
  - URTICARIA [None]
